FAERS Safety Report 6533468-5 (Version None)
Quarter: 2010Q1

REPORT INFORMATION
  Report Type: 
  Country: None (occurrence: None)
  Receive Date: 20100111
  Receipt Date: 20091001
  Transmission Date: 20100710
  Serious: Yes (Other)
  Sender: FDA-Public Use
  Company Number: A0809959A

PATIENT
  Sex: Male

DRUGS (2)
  1. REQUIP XL [Suspect]
     Indication: PARKINSON'S DISEASE
     Dosage: 4MG THREE TIMES PER DAY
     Route: 048
     Dates: start: 20081001, end: 20081107
  2. STALEVO 100 [Concomitant]

REACTIONS (2)
  - HALLUCINATION [None]
  - LOSS OF CONSCIOUSNESS [None]
